FAERS Safety Report 5345142-1 (Version None)
Quarter: 2007Q2

REPORT INFORMATION
  Report Type: 
  Country: None (occurrence: None)
  Receive Date: 20070601
  Receipt Date: 20070522
  Transmission Date: 20071010
  Serious: Yes (Hospitalization)
  Sender: FDA-Public Use
  Company Number: 2007BI008446

PATIENT
  Age: 52 Year
  Sex: Male

DRUGS (16)
  1. NATALIZUMAB [Suspect]
     Indication: MULTIPLE SCLEROSIS
     Dosage: 300 MG QM IV
     Route: 042
     Dates: start: 20061205
  2. NATALIZUMAB [Suspect]
     Indication: MULTIPLE SCLEROSIS
     Dosage: 300 MG QW IV
     Route: 042
     Dates: start: 20070502
  3. INSULIN [Concomitant]
  4. NITORGLYCERIN [Concomitant]
  5. PROVIGIL [Concomitant]
  6. SYNTHROID [Concomitant]
  7. ZOLOFT [Concomitant]
  8. LAMICTAL [Concomitant]
  9. PLAVIX [Concomitant]
  10. ASPIRIN [Concomitant]
  11. NEXIUM [Concomitant]
  12. KLONOPIN [Concomitant]
  13. ENALAPRIL MALEATE [Concomitant]
  14. ATENOLOL [Concomitant]
  15. VYTORIN [Concomitant]
  16. NORVASC [Concomitant]

REACTIONS (3)
  - INFLUENZA [None]
  - KNEE ARTHROPLASTY [None]
  - MULTIPLE SCLEROSIS RELAPSE [None]
